FAERS Safety Report 10615110 (Version 1)
Quarter: 2014Q4

REPORT INFORMATION
  Report Type: Spontaneous
  Country: IN (occurrence: IN)
  Receive Date: 20141201
  Receipt Date: 20141201
  Transmission Date: 20150529
  Serious: Yes (Other)
  Sender: FDA-Public Use
  Company Number: IN-SUN PHARMACEUTICAL INDUSTRIES LTD-2014SUN02666

PATIENT
  Age: 55 Year
  Sex: Male

DRUGS (3)
  1. WARFARIN [Interacting]
     Active Substance: WARFARIN
     Indication: DEEP VEIN THROMBOSIS
     Route: 065
  2. BUPROPION HYDROCHLORIDE EXTENDED RELEASE SR [Interacting]
     Active Substance: BUPROPION HYDROCHLORIDE
     Dosage: 300 MG/DAY, UNK
     Route: 065
  3. BUPROPION HYDROCHLORIDE EXTENDED RELEASE SR [Suspect]
     Active Substance: BUPROPION HYDROCHLORIDE
     Indication: DYSTHYMIC DISORDER
     Dosage: IN DOSES RANGING FROM 150 MG/ DAY TO 300 MG/DAY
     Route: 065

REACTIONS (3)
  - International normalised ratio increased [Recovered/Resolved]
  - Drug interaction [Recovered/Resolved]
  - Deep vein thrombosis [Recovered/Resolved]
